FAERS Safety Report 5369836-7 (Version None)
Quarter: 2007Q2

REPORT INFORMATION
  Report Type: 
  Country: None (occurrence: None)
  Receive Date: 20070621
  Receipt Date: 20070608
  Transmission Date: 20071010
  Serious: Yes (Disabling)
  Sender: FDA-Public Use
  Company Number: 230002M07BEL

PATIENT
  Age: 46 Year
  Sex: Female

DRUGS (1)
  1. REBIF [Suspect]
     Dosage: 44, 3 IN
     Dates: start: 20051010, end: 20070531

REACTIONS (1)
  - PERIARTHRITIS [None]
